FAERS Safety Report 21871624 (Version 2)
Quarter: 2023Q1

REPORT INFORMATION
  Report Type: Spontaneous
  Country: FR (occurrence: FR)
  Receive Date: 20230117
  Receipt Date: 20230223
  Transmission Date: 20230417
  Serious: Yes (Hospitalization)
  Sender: FDA-Public Use
  Company Number: None

PATIENT
  Age: 61 Year
  Sex: Male
  Weight: 74 kg

DRUGS (11)
  1. CLINDAMYCIN HYDROCHLORIDE [Suspect]
     Active Substance: CLINDAMYCIN HYDROCHLORIDE
     Indication: Infection
     Dosage: 1.8 G, 1X/DAY
     Route: 048
     Dates: start: 20221209, end: 20221217
  2. LINEZOLID [Suspect]
     Active Substance: LINEZOLID
     Indication: Infection
     Dosage: 1.2 G, 1X/DAY
     Route: 048
     Dates: start: 20221216, end: 20221223
  3. CETIRIZINE HYDROCHLORIDE [Suspect]
     Active Substance: CETIRIZINE HYDROCHLORIDE
     Indication: Pruritus
     Dosage: 10 MG, 1X/DAY
     Route: 048
     Dates: start: 20221215, end: 20221223
  4. CEFTRIAXONE [Suspect]
     Active Substance: CEFTRIAXONE
     Indication: Infection
     Dosage: 1 G, 1X/DAY
     Route: 048
     Dates: start: 20221216, end: 20221222
  5. PEMBROLIZUMAB [Concomitant]
     Active Substance: PEMBROLIZUMAB
     Indication: Bronchial carcinoma
     Dosage: 200 MG, SINGLE
     Route: 042
     Dates: start: 20221209, end: 20221209
  6. ALIMTA [Concomitant]
     Active Substance: PEMETREXED DISODIUM
     Indication: Bronchial carcinoma
     Dosage: 730 MG, SINGLE
     Route: 042
     Dates: start: 20221209, end: 20221209
  7. DOXYCYCLINE [Concomitant]
     Active Substance: DOXYCYCLINE
     Route: 048
     Dates: start: 20221123, end: 20221209
  8. PRAZEPAM [Concomitant]
     Active Substance: PRAZEPAM
     Dosage: 30 MG, 1X/DAY
     Route: 048
  9. MACROGOL 100 STEARATE [Concomitant]
     Dosage: 1 DF, 1X/DAY
     Route: 048
  10. IOBITRIDOL [Concomitant]
     Active Substance: IOBITRIDOL
     Indication: Computerised tomogram
     Dosage: 120 ML, SINGLE
     Route: 042
     Dates: start: 20221208, end: 20221208
  11. OXYCODONE [Concomitant]
     Active Substance: OXYCODONE
     Dosage: 30 MG, 1X/DAY
     Route: 048

REACTIONS (2)
  - Hepatic cytolysis [Recovered/Resolved]
  - Off label use [Unknown]

NARRATIVE: CASE EVENT DATE: 20221209
